FAERS Safety Report 6987741-7 (Version None)
Quarter: 2010Q3

REPORT INFORMATION
  Report Type: 
  Country: None (occurrence: None)
  Receive Date: 20100914
  Receipt Date: 20100823
  Transmission Date: 20110219
  Serious: Yes (Congenital Anomaly, Other)
  Sender: FDA-Public Use
  Company Number: 2010-2795

PATIENT
  Age: 67 Year
  Sex: Male

DRUGS (6)
  1. APO-GO AMPOULES (APO-GO) (APOMORPHINE HYDROCHLORIDE) (APOMORPINE HYDRO [Suspect]
     Indication: PARKINSON'S DISEASE
     Dosage: CONTINOUS, SUBCUTANEOUS
     Route: 058
     Dates: start: 20080904
  2. CLOZAPINE [Concomitant]
  3. STALEVO (STALEVO) [Concomitant]
  4. EXELON [Concomitant]
  5. SOLVEX (SOLVEX) [Concomitant]
  6. MADOPAR (MADOPAR /00349201/) [Concomitant]

REACTIONS (2)
  - PSYCHOTIC DISORDER [None]
  - URINARY INCONTINENCE [None]
